FAERS Safety Report 6710634-7 (Version None)
Quarter: 2010Q2

REPORT INFORMATION
  Report Type: 
  Country: None (occurrence: None)
  Receive Date: 20100504
  Receipt Date: 20100421
  Transmission Date: 20101027
  Serious: Yes (Other)
  Sender: FDA-Public Use
  Company Number: GB-WATSON-2010-05797

PATIENT
  Age: 43 Year
  Sex: Male

DRUGS (1)
  1. OMEPRAZOLE (WATSON LABORATORIES) [Suspect]
     Indication: REFLUX OESOPHAGITIS
     Dosage: HIGH DOSE, UNK

REACTIONS (2)
  - HYPOCALCAEMIA [None]
  - HYPOMAGNESAEMIA [None]
